FAERS Safety Report 5460304-0 (Version None)
Quarter: 2007Q3

REPORT INFORMATION
  Report Type: 
  Country: None (occurrence: None)
  Receive Date: 20070919
  Receipt Date: 20070907
  Transmission Date: 20080115
  Serious: Yes (Other)
  Sender: FDA-Public Use
  Company Number: GB-PFIZER INC-2007075571

PATIENT
  Age: 68 Year
  Sex: Female
  Weight: 43.3 kg

DRUGS (1)
  1. CHAMPIX [Suspect]
     Dosage: TEXT:1.5MG
     Route: 048
     Dates: start: 20070726, end: 20070808

REACTIONS (3)
  - HYPERHIDROSIS [None]
  - NAUSEA [None]
  - RETCHING [None]
